FAERS Safety Report 11813754 (Version 1)
Quarter: 2015Q4

REPORT INFORMATION
  Report Type: Spontaneous
  Country: US (occurrence: None)
  Receive Date: 20151208
  Receipt Date: 20151208
  Transmission Date: 20160305
  Serious: Yes (Other)
  Sender: FDA-Public Use
  Company Number: None

PATIENT
  Age: 36 Year
  Sex: Female
  Weight: 70.31 kg

DRUGS (2)
  1. IMPLANON [Concomitant]
     Active Substance: ETONOGESTREL
  2. LEVAQUIN [Suspect]
     Active Substance: LEVOFLOXACIN
     Indication: SIALOADENITIS
     Route: 048
     Dates: start: 20151110, end: 20151112

REACTIONS (6)
  - Dehydration [None]
  - Vomiting [None]
  - Oral mucosal blistering [None]
  - Pruritus [None]
  - Nausea [None]
  - Hepatitis [None]

NARRATIVE: CASE EVENT DATE: 20151115
